FAERS Safety Report 9339197 (Version 1)
Quarter: 2013Q2

REPORT INFORMATION
  Report Type: Spontaneous
  Country: US (occurrence: None)
  Receive Date: 20130606
  Receipt Date: 20130606
  Transmission Date: 20140414
  Serious: No
  Sender: FDA-Public Use
  Company Number: None

PATIENT
  Sex: Male

DRUGS (1)
  1. HUMIRA [Suspect]
     Indication: ILL-DEFINED DISORDER
     Route: 058
     Dates: start: 20120702, end: 20130501

REACTIONS (3)
  - Oedema [None]
  - Weight increased [None]
  - Fluid retention [None]
